FAERS Safety Report 18998251 (Version 3)
Quarter: 2021Q2

REPORT INFORMATION
  Report Type: Spontaneous
  Country: CN (occurrence: CN)
  Receive Date: 20210311
  Receipt Date: 20210528
  Transmission Date: 20210717
  Serious: Yes (Hospitalization, Other)
  Sender: FDA-Public Use
  Company Number: CN-ASTRAZENECA-2021A030040

PATIENT
  Age: 67 Year
  Sex: Male

DRUGS (2)
  1. PIRARUBICIN [Concomitant]
     Active Substance: PIRARUBICIN
     Indication: BLADDER CANCER
     Dosage: DAILY DOSE OF 40MG OR 50MG
     Route: 065
     Dates: start: 20200719, end: 20200903
  2. IMFINZI [Suspect]
     Active Substance: DURVALUMAB
     Indication: BLADDER CANCER
     Route: 041
     Dates: start: 20200716, end: 20201010

REACTIONS (14)
  - Skin exfoliation [Recovering/Resolving]
  - Blood uric acid increased [Not Recovered/Not Resolved]
  - Somnolence [Unknown]
  - Aspartate aminotransferase increased [Recovering/Resolving]
  - Anhidrosis [Recovering/Resolving]
  - Blood lactate dehydrogenase increased [Recovering/Resolving]
  - Blood creatinine increased [Not Recovered/Not Resolved]
  - Chest discomfort [Recovering/Resolving]
  - Renal impairment [Not Recovered/Not Resolved]
  - Hypothyroidism [Recovering/Resolving]
  - Dyspnoea [Recovering/Resolving]
  - Hepatic function abnormal [Not Recovered/Not Resolved]
  - Asthenia [Recovering/Resolving]
  - Blood creatine phosphokinase increased [Unknown]

NARRATIVE: CASE EVENT DATE: 2020
